FAERS Safety Report 7628287-2 (Version None)
Quarter: 2011Q3

REPORT INFORMATION
  Report Type: 
  Country: None (occurrence: None)
  Receive Date: 20110722
  Receipt Date: 20110713
  Transmission Date: 20111222
  Serious: Yes (Hospitalization)
  Sender: FDA-Public Use
  Company Number: DE-JNJFOC-20110506303

PATIENT
  Sex: Male

DRUGS (46)
  1. HALDOL [Suspect]
     Route: 042
     Dates: start: 20050701, end: 20050701
  2. HALDOL [Suspect]
     Route: 042
     Dates: start: 20050703, end: 20050704
  3. PROPOFOL [Interacting]
     Route: 042
     Dates: start: 20050624, end: 20050624
  4. PROPOFOL [Interacting]
     Route: 042
     Dates: start: 20050623, end: 20050623
  5. MIDAZOLAM HCL [Interacting]
     Indication: PRODUCT USED FOR UNKNOWN INDICATION
     Route: 042
     Dates: start: 20050702, end: 20050702
  6. CLORAZEPATE DIPOTASSIUM [Interacting]
     Route: 042
     Dates: start: 20050627, end: 20050627
  7. MORPHINE [Interacting]
     Indication: PRODUCT USED FOR UNKNOWN INDICATION
     Route: 065
     Dates: start: 20050622, end: 20050622
  8. LUDIOMIL [Interacting]
     Indication: PRODUCT USED FOR UNKNOWN INDICATION
     Route: 042
     Dates: start: 20050630, end: 20050630
  9. LUDIOMIL [Interacting]
     Route: 042
     Dates: start: 20050628, end: 20050629
  10. LUDIOMIL [Interacting]
     Route: 048
     Dates: start: 20050705, end: 20050710
  11. MADOPAR [Interacting]
     Indication: PRODUCT USED FOR UNKNOWN INDICATION
     Route: 048
     Dates: start: 20050707, end: 20050710
  12. METHYLPREDNISOLONE [Interacting]
     Indication: PRODUCT USED FOR UNKNOWN INDICATION
     Route: 042
     Dates: start: 20050624, end: 20050624
  13. CLONIDINE [Interacting]
     Indication: PRODUCT USED FOR UNKNOWN INDICATION
     Route: 042
     Dates: start: 20050624, end: 20050709
  14. PROPOFOL [Interacting]
     Route: 042
     Dates: start: 20050622, end: 20050622
  15. MIDAZOLAM HCL [Interacting]
     Route: 042
     Dates: start: 20050623, end: 20050624
  16. CLORAZEPATE DIPOTASSIUM [Interacting]
     Route: 042
     Dates: start: 20050625, end: 20050625
  17. CLORAZEPATE DIPOTASSIUM [Interacting]
     Route: 042
     Dates: start: 20050624, end: 20050624
  18. LUDIOMIL [Interacting]
     Route: 048
     Dates: start: 20050711, end: 20050711
  19. HALDOL [Suspect]
     Indication: PRODUCT USED FOR UNKNOWN INDICATION
     Route: 042
     Dates: start: 20050626, end: 20050626
  20. PROMETHAZINE HCL [Interacting]
     Indication: PRODUCT USED FOR UNKNOWN INDICATION
     Route: 048
     Dates: start: 20050710, end: 20050710
  21. NEXIUM [Interacting]
     Indication: PRODUCT USED FOR UNKNOWN INDICATION
     Route: 042
     Dates: start: 20050622, end: 20050703
  22. NEXIUM [Interacting]
     Route: 048
     Dates: start: 20050704, end: 20050711
  23. ASPIRIN [Interacting]
     Indication: PRODUCT USED FOR UNKNOWN INDICATION
     Route: 048
     Dates: start: 20050706, end: 20050706
  24. HALDOL [Suspect]
     Route: 042
     Dates: start: 20050702, end: 20050702
  25. CLORAZEPATE DIPOTASSIUM [Interacting]
     Route: 042
     Dates: start: 20050705, end: 20050705
  26. LORAZEPAM [Interacting]
     Indication: PRODUCT USED FOR UNKNOWN INDICATION
     Route: 042
     Dates: start: 20050709, end: 20050709
  27. LORAZEPAM [Interacting]
     Route: 042
     Dates: start: 20050705, end: 20050705
  28. TORSEMIDE [Interacting]
     Route: 042
     Dates: start: 20050624, end: 20050703
  29. TORSEMIDE [Interacting]
     Route: 042
     Dates: start: 20050623, end: 20050623
  30. HALDOL [Suspect]
     Route: 042
     Dates: start: 20050627, end: 20050630
  31. PROPOFOL [Interacting]
     Indication: ANAESTHESIA
     Route: 042
     Dates: start: 20050625, end: 20050625
  32. PROMETHAZINE HCL [Interacting]
     Route: 048
     Dates: start: 20050708, end: 20050708
  33. PROMETHAZINE HCL [Interacting]
     Route: 042
     Dates: start: 20050709, end: 20050709
  34. ACETAMINOPHEN [Interacting]
     Indication: PRODUCT USED FOR UNKNOWN INDICATION
     Route: 042
     Dates: start: 20050709, end: 20050709
  35. CLORAZEPATE DIPOTASSIUM [Interacting]
     Indication: PRODUCT USED FOR UNKNOWN INDICATION
     Route: 042
     Dates: start: 20050708, end: 20050708
  36. CLORAZEPATE DIPOTASSIUM [Interacting]
     Route: 042
     Dates: start: 20050629, end: 20050701
  37. TORSEMIDE [Interacting]
     Route: 048
     Dates: start: 20050704, end: 20050711
  38. SCOPOLAMINE [Interacting]
     Indication: PRODUCT USED FOR UNKNOWN INDICATION
     Route: 042
     Dates: start: 20050709, end: 20050709
  39. NOVALGIN [Interacting]
     Indication: PRODUCT USED FOR UNKNOWN INDICATION
     Route: 042
     Dates: start: 20050709, end: 20050709
  40. CIPROFLOXACIN HYDROCHLORIDE [Interacting]
     Indication: PRODUCT USED FOR UNKNOWN INDICATION
     Route: 042
     Dates: start: 20050709, end: 20050711
  41. METOCLOPRAMIDE [Interacting]
     Indication: PRODUCT USED FOR UNKNOWN INDICATION
     Route: 065
     Dates: start: 20050709, end: 20050709
  42. HALDOL [Suspect]
     Route: 042
     Dates: start: 20050625, end: 20050625
  43. ESKETAMINE [Interacting]
     Indication: PRODUCT USED FOR UNKNOWN INDICATION
     Route: 042
     Dates: start: 20050708, end: 20050708
  44. ESKETAMINE [Interacting]
     Route: 042
     Dates: start: 20050705, end: 20050705
  45. LUDIOMIL [Interacting]
     Route: 042
     Dates: start: 20050701, end: 20050704
  46. TORSEMIDE [Interacting]
     Indication: PRODUCT USED FOR UNKNOWN INDICATION
     Route: 065
     Dates: start: 20050622, end: 20050622

REACTIONS (11)
  - AKATHISIA [None]
  - SUICIDE ATTEMPT [None]
  - CHOLANGITIS [None]
  - TRACHEOBRONCHITIS [None]
  - WRONG DRUG ADMINISTERED [None]
  - OVERDOSE [None]
  - DRUG INTERACTION [None]
  - INFECTIOUS PERITONITIS [None]
  - INCORRECT DOSE ADMINISTERED [None]
  - FALL [None]
  - DISORIENTATION [None]
